FAERS Safety Report 9214413 (Version 1)
Quarter: 2013Q2

REPORT INFORMATION
  Report Type: Spontaneous
  Country: US (occurrence: US)
  Receive Date: 20130405
  Receipt Date: 20130405
  Transmission Date: 20140414
  Serious: Yes (Disabling)
  Sender: FDA-Public Use
  Company Number: US-MERCK-1304USA001973

PATIENT
  Sex: Male

DRUGS (1)
  1. PROPECIA [Suspect]
     Indication: ANDROGENETIC ALOPECIA
     Dosage: UNK
     Route: 048
     Dates: start: 2002, end: 201105

REACTIONS (5)
  - Orgasm abnormal [Unknown]
  - Libido decreased [Unknown]
  - Erectile dysfunction [Unknown]
  - Semen volume decreased [Unknown]
  - Ejaculation disorder [Unknown]
